FAERS Safety Report 8615277-6 (Version None)
Quarter: 2012Q3

REPORT INFORMATION
  Report Type: 
  Country: None (occurrence: None)
  Receive Date: 20120823
  Receipt Date: 20120817
  Transmission Date: 20120928
  Serious: No
  Sender: FDA-Public Use
  Company Number: US-PFIZER INC-2012171711

PATIENT
  Age: 59 Year
  Sex: Female
  Weight: 77.098 kg

DRUGS (4)
  1. NEURONTIN [Suspect]
     Indication: TREMOR
     Dosage: 500 MG, 2X/DAY
     Dates: start: 20120601, end: 20120601
  2. NEURONTIN [Suspect]
  3. BUSPAR [Concomitant]
     Indication: ANXIETY
     Dosage: UNK
  4. LEXAPRO [Concomitant]
     Indication: ANXIETY
     Dosage: 20 MG, 2X/DAY

REACTIONS (3)
  - NERVOUSNESS [None]
  - OFF LABEL USE [None]
  - FEELING ABNORMAL [None]
